FAERS Safety Report 8306019 (Version 2)
Quarter: 2013Q2

REPORT INFORMATION
  Report Type: Spontaneous
  Country: SA (occurrence: SA)
  Receive Date: 20111221
  Receipt Date: 20130613
  Transmission Date: 20140414
  Serious: Yes (Other)
  Sender: FDA-Public Use
  Company Number: PHHY2011SA108992

PATIENT
  Age: 44 Year
  Sex: Female

DRUGS (6)
  1. METFORMIN [Suspect]
     Indication: TYPE 2 DIABETES MELLITUS
     Dosage: 500 MG, BID
  2. PREDNISOLONE [Concomitant]
     Dosage: 10 MG, DAILY
  3. TRAMADOL [Concomitant]
     Dosage: 100 MG, DAILY (AS REQUIRED)
  4. HYDROXYCHLOROQUINE [Concomitant]
     Dosage: 400 MG, BID
  5. ASPIRIN [Concomitant]
     Dosage: 81 MG, DAILY
  6. CALCIUM [Concomitant]
     Dosage: 500 MG, DAILY

REACTIONS (5)
  - Hepatotoxicity [Recovered/Resolved]
  - Liver injury [Recovered/Resolved]
  - Hepatic steatosis [Recovered/Resolved]
  - Alanine aminotransferase increased [Recovered/Resolved]
  - Gamma-glutamyltransferase increased [Recovered/Resolved]
